FAERS Safety Report 8014722-7 (Version None)
Quarter: 2011Q4

REPORT INFORMATION
  Report Type: 
  Country: None (occurrence: None)
  Receive Date: 20111229
  Receipt Date: 20111221
  Transmission Date: 20120403
  Serious: Yes (Hospitalization)
  Sender: FDA-Public Use
  Company Number: DE-ABBOTT-11P-062-0873085-00

PATIENT
  Sex: Female
  Weight: 65 kg

DRUGS (4)
  1. PREDNISOLONE [Concomitant]
     Indication: RHEUMATOID ARTHRITIS
     Route: 048
     Dates: start: 20001103
  2. HUMIRA [Suspect]
     Indication: RHEUMATOID ARTHRITIS
     Route: 058
     Dates: start: 20100401, end: 20110801
  3. METHOTREXATE [Concomitant]
     Indication: RHEUMATOID ARTHRITIS
     Dates: start: 20111001
  4. NAPROXEN [Concomitant]
     Indication: RHEUMATOID ARTHRITIS
     Dates: start: 20110509

REACTIONS (1)
  - AORTIC ANEURYSM [None]
